FAERS Safety Report 6773515-9 (Version None)
Quarter: 2010Q2

REPORT INFORMATION
  Report Type: 
  Country: None (occurrence: None)
  Receive Date: 20100616
  Receipt Date: 20100603
  Transmission Date: 20101027
  Serious: No
  Sender: FDA-Public Use
  Company Number: US-ABBOTT-10P-163-0649681-00

PATIENT
  Age: 67 Year
  Sex: Female

DRUGS (4)
  1. TRILIPIX [Suspect]
     Indication: DRUG USE FOR UNKNOWN INDICATION
     Route: 048
  2. VYTORIN [Suspect]
     Indication: DRUG USE FOR UNKNOWN INDICATION
     Dosage: 10/10 MG ONCE A DAY
     Route: 048
  3. UNKNOWN HYPERTENSION MEDICATION [Concomitant]
     Indication: DRUG USE FOR UNKNOWN INDICATION
  4. UNKNOWN DIABETIC MEDICATION [Concomitant]
     Indication: DRUG USE FOR UNKNOWN INDICATION

REACTIONS (1)
  - HEPATIC ENZYME INCREASED [None]
